FAERS Safety Report 7536768-5 (Version None)
Quarter: 2011Q2

REPORT INFORMATION
  Report Type: 
  Country: None (occurrence: None)
  Receive Date: 20110609
  Receipt Date: 20110606
  Transmission Date: 20111010
  Serious: Yes (Death, Other)
  Sender: FDA-Public Use
  Company Number: GR-ROCHE-736529

PATIENT
  Age: 76 Year
  Sex: Male

DRUGS (8)
  1. OXALIPLATIN [Suspect]
     Indication: COLORECTAL CANCER
     Dosage: WITHDRAWN AFTER 3 CYCLE
     Route: 065
     Dates: start: 20071115, end: 20080815
  2. VECTIBIX [Suspect]
     Indication: COLORECTAL CANCER
     Dosage: SIXTEEN CYCLE
     Route: 041
     Dates: start: 20080801, end: 20090401
  3. BEVACIZUMAB [Suspect]
     Dosage: SECOND LINE TREATMENT
     Route: 065
  4. CAPECITABINE [Suspect]
     Indication: COLORECTAL CANCER
     Dosage: FIRST-LINE TREATMENT
     Route: 065
     Dates: start: 20060701, end: 20061101
  5. BEVACIZUMAB [Suspect]
     Dosage: 9 CYCLES OF MAINTENANCE THERAPY
     Route: 065
     Dates: start: 20071101, end: 20080801
  6. BEVACIZUMAB [Suspect]
     Indication: COLORECTAL CANCER
     Dosage: FIRST-LINE TREATMENT
     Route: 065
     Dates: start: 20060701, end: 20061101
  7. IRINOTECAN HYDROCHLORIDE [Suspect]
     Indication: COLORECTAL CANCER
     Dosage: FIRST-LINE TREATMENT
     Route: 065
     Dates: start: 20060701, end: 20061101
  8. BEVACIZUMAB [Suspect]
     Dosage: MAINTENANCE MONOTHERAPY
     Route: 065

REACTIONS (5)
  - DEATH [None]
  - PALMAR-PLANTAR ERYTHRODYSAESTHESIA SYNDROME [None]
  - DIARRHOEA [None]
  - NEUROTOXICITY [None]
  - DERMATITIS ACNEIFORM [None]
